FAERS Safety Report 7468579-3 (Version None)
Quarter: 2011Q2

REPORT INFORMATION
  Report Type: 
  Country: None (occurrence: None)
  Receive Date: 20110509
  Receipt Date: 20110110
  Transmission Date: 20111010
  Serious: Yes (Other)
  Sender: FDA-Public Use
  Company Number: CA-BAYER-2011-016080

PATIENT
  Age: 88 Year
  Sex: Female
  Weight: 89 kg

DRUGS (19)
  1. ASPIRIN [Concomitant]
  2. IPRATROPIUM BROMIDE [Concomitant]
  3. MULTI-VITAMIN [Concomitant]
  4. NEXIUM [Concomitant]
  5. AVELOX [Suspect]
     Indication: UNEVALUABLE EVENT
     Dosage: 400 MG, QD
     Route: 048
     Dates: start: 20101013, end: 20101015
  6. PREDNISONE TAB [Concomitant]
  7. ALBUTEROL SULFATE AUTOHALER [Concomitant]
     Route: 055
  8. REPLAVITE [Concomitant]
  9. VITAMIN B-12 [Concomitant]
  10. OXYCODONE [Concomitant]
  11. PAROXETINE HCL [Concomitant]
  12. ESOMEPRAZOLE [Concomitant]
  13. CALCIUM +VIT D [Concomitant]
  14. LEVOTHYROXINE SODIUM [Concomitant]
  15. ACETAMINOPHEN [Concomitant]
  16. DOCUSATE [Concomitant]
  17. METOPROLOL TARTRATE [Concomitant]
  18. POTASSIUM [POTASSIUM] [Concomitant]
  19. FUROSEMIDE [Concomitant]

REACTIONS (4)
  - NERVOUSNESS [None]
  - TREMOR [None]
  - NAUSEA [None]
  - MENTAL IMPAIRMENT [None]
